FAERS Safety Report 12329831 (Version 1)
Quarter: 2016Q2

REPORT INFORMATION
  Report Type: Spontaneous
  Country: US (occurrence: US)
  Receive Date: 20160503
  Receipt Date: 20160503
  Transmission Date: 20160815
  Serious: Yes (Other)
  Sender: FDA-Public Use
  Company Number: PHHY2016US059199

PATIENT
  Age: 66 Year
  Sex: Male

DRUGS (1)
  1. NILOTINIB [Suspect]
     Active Substance: NILOTINIB
     Indication: CHRONIC MYELOID LEUKAEMIA
     Dosage: 300 MG, BID
     Route: 065
     Dates: start: 2014

REACTIONS (6)
  - Papule [Recovering/Resolving]
  - Skin haemorrhage [Unknown]
  - Erythema [Recovering/Resolving]
  - Keratosis follicular [Recovering/Resolving]
  - Vitamin C deficiency [Unknown]
  - Rash pruritic [Recovering/Resolving]
